FAERS Safety Report 20046696 (Version 1)
Quarter: 2021Q4

REPORT INFORMATION
  Report Type: Spontaneous
  Country: US (occurrence: US)
  Receive Date: 20211109
  Receipt Date: 20211109
  Transmission Date: 20220303
  Serious: Yes (Death, Hospitalization)
  Sender: FDA-Public Use
  Company Number: US-JNJFOC-20211100663

PATIENT
  Age: 76 Year
  Sex: Female
  Weight: 64 kg

DRUGS (7)
  1. TYLENOL [Suspect]
     Active Substance: ACETAMINOPHEN
     Indication: Accidental overdose
     Dosage: ACETAMINOPHEN 2000 MG PER DAY FOR 12 MONTHS
     Route: 048
     Dates: end: 20000711
  2. PERCOCET [Suspect]
     Active Substance: ACETAMINOPHEN\OXYCODONE HYDROCHLORIDE
     Indication: Accidental overdose
     Dosage: ACETAMINOPHEN 325 MG OXYCODONE HYDROCHLORIDE 5 MG WITH TOTAL DAILY DOSE OF ACETAMINOPHEN 1300 MG/OXY
     Route: 048
     Dates: end: 20000711
  3. DURAGESIC [Concomitant]
     Active Substance: FENTANYL
     Indication: Product used for unknown indication
     Dosage: DAILY DOSE 50 UG FOR 6 MONTHS
     Route: 065
     Dates: end: 20000711
  4. ARAVA [Concomitant]
     Active Substance: LEFLUNOMIDE
     Indication: Product used for unknown indication
     Dosage: 1 TABLET A DAY FOR 18 MONTHS
     Route: 065
     Dates: end: 20000711
  5. PREDNISONE [Concomitant]
     Active Substance: PREDNISONE
     Indication: Product used for unknown indication
     Dosage: DAILY DOSE OF 5 MG FOR 144 MONTHS
     Route: 065
     Dates: end: 20000711
  6. CALCIUM\CHOLECALCIFEROL [Concomitant]
     Active Substance: CALCIUM\CHOLECALCIFEROL
     Indication: Product used for unknown indication
     Dosage: DAILY DOSE OF 1000 MG FOR 60 MONTHS
     Route: 065
     Dates: end: 20000711
  7. MAGNESIUM OXIDE [Concomitant]
     Active Substance: MAGNESIUM OXIDE
     Indication: Product used for unknown indication
     Dosage: FOR 18 MONTHS
     Route: 065
     Dates: end: 20000711

REACTIONS (8)
  - Acute hepatic failure [Fatal]
  - Cardiopulmonary failure [Fatal]
  - Staphylococcal infection [Fatal]
  - Enterococcal infection [Fatal]
  - Fungal infection [Fatal]
  - Chest X-ray abnormal [Fatal]
  - Arrhythmia [Fatal]
  - Accidental overdose [Fatal]
